FAERS Safety Report 17270751 (Version 1)
Quarter: 2020Q1

REPORT INFORMATION
  Report Type: Spontaneous
  Country: BR (occurrence: BR)
  Receive Date: 20200114
  Receipt Date: 20200114
  Transmission Date: 20200409
  Serious: Yes (Other)
  Sender: FDA-Public Use
  Company Number: BR-BAXTER-2020BAX000508

PATIENT
  Age: 89 Year
  Sex: Female
  Weight: 63 kg

DRUGS (20)
  1. SIMVASTATIN. [Concomitant]
     Active Substance: SIMVASTATIN
     Indication: PRODUCT USED FOR UNKNOWN INDICATION
     Route: 065
  2. GENUXAL [Suspect]
     Active Substance: CYCLOPHOSPHAMIDE
     Dosage: GENUXAL + 0.9 % PHYSIOLOGICAL SERUM, LAST INFUSION PRIOR TO EVENT
     Route: 042
     Dates: start: 20191028, end: 20191028
  3. CLORETO DE S?DIO - BAXTER [Suspect]
     Active Substance: SODIUM CHLORIDE
     Dosage: CMF REGIMEN, CYCLE 1-4, FAULDFLUOR + 0.9 % PHYSIOLOGICAL SERUM, INFUSION TIME: 30 MINUTES
     Route: 042
     Dates: start: 20190815
  4. CLORETO DE S?DIO - BAXTER [Suspect]
     Active Substance: SODIUM CHLORIDE
     Dosage: CMF REGIMEN, FAULDFLUOR + 0.9 % PHYSIOLOGICAL SERUM, LAST INFUSION PRIOR TO EVENT
     Route: 042
     Dates: start: 20191028, end: 20191028
  5. AAS [Concomitant]
     Active Substance: ASPIRIN
     Indication: PRODUCT USED FOR UNKNOWN INDICATION
     Route: 065
  6. VILDAGLIPTIN [Concomitant]
     Active Substance: VILDAGLIPTIN
     Indication: PRODUCT USED FOR UNKNOWN INDICATION
     Route: 065
  7. CLORETO DE S?DIO - BAXTER [Suspect]
     Active Substance: SODIUM CHLORIDE
     Dosage: CMF REGIMEN, CYCLE 1-4, FAULDMETRO + 0.9 % NACL
     Route: 040
     Dates: start: 20190815
  8. NITRENDIPINE [Concomitant]
     Active Substance: NITRENDIPINE
     Indication: PRODUCT USED FOR UNKNOWN INDICATION
     Dosage: EVERY 24 HOURS
     Route: 065
  9. LEVOTHYROXINE. [Concomitant]
     Active Substance: LEVOTHYROXINE
     Indication: PRODUCT USED FOR UNKNOWN INDICATION
     Route: 065
  10. ESCITALOPRAM [Concomitant]
     Active Substance: ESCITALOPRAM OXALATE
     Indication: PRODUCT USED FOR UNKNOWN INDICATION
     Route: 065
  11. DEXAMETHASONE. [Concomitant]
     Active Substance: DEXAMETHASONE
     Indication: PREMEDICATION
     Route: 065
  12. FAULDMETRO [Suspect]
     Active Substance: METHOTREXATE SODIUM
     Indication: INVASIVE LOBULAR BREAST CARCINOMA
     Dosage: CMF REGIMEN, CYCLE 1-4, FAULDMETRO 50 MG + 0.9 % NACL 50 ML
     Route: 040
     Dates: start: 20190815
  13. FAULDFLUOR [Suspect]
     Active Substance: FLUOROURACIL
     Indication: INVASIVE LOBULAR BREAST CARCINOMA
     Dosage: CMF REGIMEN, CYCLE 1-4, FAULDFLUOR + 0.9 % PHYSIOLOGICAL SERUM, INFUSION TIME: 30 MINUTES
     Route: 042
     Dates: start: 20190815
  14. GENUXAL [Suspect]
     Active Substance: CYCLOPHOSPHAMIDE
     Indication: INVASIVE LOBULAR BREAST CARCINOMA
     Dosage: CMF REGIMEN, CYCLE 1-4, GENUXAL + 0.9 % PHYSIOLOGICAL SERUM, INFUSION TIME: 30 MINUTES
     Route: 042
     Dates: start: 20190815
  15. CLORETO DE S?DIO - BAXTER [Suspect]
     Active Substance: SODIUM CHLORIDE
     Dosage: CMF REGIMEN, GENUXAL + 0.9 % PHYSIOLOGICAL SERUM, LAST INFUSION PRIOR TO EVENT
     Route: 042
     Dates: start: 20191028, end: 20191028
  16. FAULDFLUOR [Suspect]
     Active Substance: FLUOROURACIL
     Dosage: CMF REGIMEN, FAULDFLUOR + 0.9 % PHYSIOLOGICAL SERUM, LAST INFUSION PRIOR TO EVENT
     Route: 042
     Dates: start: 20191028, end: 20191028
  17. GRANISETRON [Concomitant]
     Active Substance: GRANISETRON
     Indication: PREMEDICATION
     Route: 065
  18. CLORETO DE S?DIO - BAXTER [Suspect]
     Active Substance: SODIUM CHLORIDE
     Dosage: CMF REGIMEN, FAULDMETRO + 0.9 % NACL, LAST INFUSION PRIOR TO EVENT
     Route: 040
     Dates: start: 20191028, end: 20191028
  19. CLORETO DE S?DIO - BAXTER [Suspect]
     Active Substance: SODIUM CHLORIDE
     Indication: MEDICATION DILUTION
     Dosage: CMF REGIMEN, CYCLE 1-4, GENUXAL + 0.9 % PHYSIOLOGICAL SERUM, INFUSION TIME: 30 MINUTES
     Route: 042
     Dates: start: 20190815
  20. FAULDMETRO [Suspect]
     Active Substance: METHOTREXATE SODIUM
     Dosage: CMF REGIMEN, FAULDMETRO + 0.9 % NACL, LAST INFUSION PRIOR TO SAE
     Route: 040
     Dates: start: 20191028, end: 20191028

REACTIONS (1)
  - Neutropenia [Recovered/Resolved]

NARRATIVE: CASE EVENT DATE: 20191028
